FAERS Safety Report 19459348 (Version 5)
Quarter: 2024Q3

REPORT INFORMATION
  Report Type: Spontaneous
  Country: US (occurrence: US)
  Receive Date: 20210624
  Receipt Date: 20240823
  Transmission Date: 20241016
  Serious: No
  Sender: PFIZER
  Company Number: US-PFIZER INC-2021354487

PATIENT
  Age: 78 Year
  Sex: Female
  Weight: 76.2 kg

DRUGS (2)
  1. PREMARIN [Suspect]
     Active Substance: ESTROGENS, CONJUGATED
     Indication: Oestrogen replacement therapy
     Dosage: 0.625 MG, TAKES EVERY DAY BUT 5 DAYS, STOPS, THEN STARTS AGAIN
  2. PREMARIN [Suspect]
     Active Substance: ESTROGENS, CONJUGATED
     Dosage: 0.625 MG, 1X/DAY
     Route: 048

REACTIONS (4)
  - Hot flush [Unknown]
  - Night sweats [Unknown]
  - Product administration error [Unknown]
  - COVID-19 [Unknown]
